FAERS Safety Report 22167638 (Version 1)
Quarter: 2023Q2

REPORT INFORMATION
  Report Type: Spontaneous
  Country: JP (occurrence: JP)
  Receive Date: 20230403
  Receipt Date: 20230403
  Transmission Date: 20230722
  Serious: Yes (Other)
  Sender: FDA-Public Use
  Company Number: JP-NAPPMUNDI-GBR-2023-0106465

PATIENT
  Age: 9 Decade
  Sex: Male

DRUGS (5)
  1. MS CONTIN [Suspect]
     Active Substance: MORPHINE SULFATE
     Indication: Product used for unknown indication
     Dosage: UNK
     Route: 048
  2. MS CONTIN [Suspect]
     Active Substance: MORPHINE SULFATE
     Dosage: UNK
     Route: 048
  3. MS CONTIN [Suspect]
     Active Substance: MORPHINE SULFATE
     Dosage: 30 MILLIGRAM, DAILY
     Route: 048
  4. MS CONTIN [Suspect]
     Active Substance: MORPHINE SULFATE
     Dosage: UNK
     Route: 048
  5. MS CONTIN [Suspect]
     Active Substance: MORPHINE SULFATE
     Dosage: 20 MILLIGRAM, DAILY
     Route: 048

REACTIONS (8)
  - Altered state of consciousness [Unknown]
  - Somnolence [Unknown]
  - Miosis [Unknown]
  - Dysarthria [Unknown]
  - Sleep disorder [Unknown]
  - Anxiety [Recovering/Resolving]
  - Overdose [Unknown]
  - Off label use [Unknown]
